FAERS Safety Report 11727300 (Version 2)
Quarter: 2016Q1

REPORT INFORMATION
  Report Type: Spontaneous
  Country: US (occurrence: US)
  Receive Date: 20151112
  Receipt Date: 20160121
  Transmission Date: 20160525
  Serious: Yes (Other)
  Sender: FDA-Public Use
  Company Number: US-GLAXOSMITHKLINE-US2015159402

PATIENT
  Age: 54 Year
  Sex: Female

DRUGS (6)
  1. BENLYSTA [Suspect]
     Active Substance: BELIMUMAB
     Indication: SYSTEMIC LUPUS ERYTHEMATOSUS
     Dosage: UNK
     Route: 042
     Dates: start: 20150512
  2. TIZANIDINE. [Concomitant]
     Active Substance: TIZANIDINE
  3. VALSARTAN. [Concomitant]
     Active Substance: VALSARTAN
  4. TAMSULOSIN [Concomitant]
     Active Substance: TAMSULOSIN
  5. LEFLUNOMIDE. [Concomitant]
     Active Substance: LEFLUNOMIDE
  6. ACETAMINOPHEN AND CODEINE [Concomitant]
     Active Substance: ACETAMINOPHEN\CODEINE PHOSPHATE

REACTIONS (5)
  - Rash [Not Recovered/Not Resolved]
  - Fall [Unknown]
  - Lower limb fracture [Unknown]
  - Renal impairment [Not Recovered/Not Resolved]
  - Blood urine present [Not Recovered/Not Resolved]

NARRATIVE: CASE EVENT DATE: 201508
